FAERS Safety Report 10753164 (Version 2)
Quarter: 2015Q1

REPORT INFORMATION
  Report Type: Report from Study
  Country: US (occurrence: US)
  Receive Date: 20150130
  Receipt Date: 20150212
  Transmission Date: 20150721
  Serious: Yes (Hospitalization)
  Sender: FDA-Public Use
  Company Number: US-ACTELION-A-US2014-110497

PATIENT
  Age: 63 Year
  Sex: Male

DRUGS (1)
  1. MACITENTAN [Suspect]
     Active Substance: MACITENTAN
     Indication: PULMONARY ARTERIAL HYPERTENSION
     Dosage: 10 MG, QD
     Route: 048

REACTIONS (11)
  - Hyperglycaemia [Unknown]
  - Constipation [Unknown]
  - Hypertension [Unknown]
  - Tobacco abuse [Unknown]
  - Hyperlipidaemia [Unknown]
  - Pneumonia [Unknown]
  - Anaemia [Unknown]
  - Carbon dioxide abnormal [Unknown]
  - Respiratory failure [Unknown]
  - Insomnia [Unknown]
  - Chronic obstructive pulmonary disease [Unknown]
